FAERS Safety Report 6735308-8 (Version None)
Quarter: 2010Q2

REPORT INFORMATION
  Report Type: 
  Country: None (occurrence: None)
  Receive Date: 20100519
  Receipt Date: 20100504
  Transmission Date: 20101027
  Serious: Yes (Other)
  Sender: FDA-Public Use
  Company Number: AUR-APL-2010-01263

PATIENT
  Age: 83 Year
  Sex: Female

DRUGS (2)
  1. LISINOPRIL [Suspect]
  2. METOPROLOL [Suspect]

REACTIONS (2)
  - DISEASE PROGRESSION [None]
  - OPTIC NERVE DISORDER [None]
